FAERS Safety Report 15190448 (Version 1)
Quarter: 2018Q3

REPORT INFORMATION
  Report Type: Report from Study
  Country: EG (occurrence: EG)
  Receive Date: 20180724
  Receipt Date: 20180724
  Transmission Date: 20181010
  Serious: Yes (Death, Hospitalization)
  Sender: FDA-Public Use
  Company Number: EG-SA-2018SA138366

PATIENT
  Age: 59 Year
  Sex: Male

DRUGS (1)
  1. INSULIN GLARGINE [Suspect]
     Active Substance: INSULIN GLARGINE
     Indication: TYPE 2 DIABETES MELLITUS
     Dosage: 10 IU,QD
     Route: 058
     Dates: start: 20160611, end: 20160824

REACTIONS (4)
  - Pyrexia [Unknown]
  - Tremor [Unknown]
  - Splenomegaly [Unknown]
  - Death [Fatal]

NARRATIVE: CASE EVENT DATE: 20160824
